FAERS Safety Report 25180219 (Version 1)
Quarter: 2025Q2

REPORT INFORMATION
  Report Type: Spontaneous
  Country: CA (occurrence: CA)
  Receive Date: 20250409
  Receipt Date: 20250409
  Transmission Date: 20250717
  Serious: Yes (Other)
  Sender: NOVO NORDISK
  Company Number: CA-NOVOPROD-1391358

PATIENT
  Age: 38 Year
  Sex: Female
  Weight: 101.6 kg

DRUGS (6)
  1. WEGOVY [Suspect]
     Active Substance: SEMAGLUTIDE
     Indication: Product used for unknown indication
     Route: 058
     Dates: start: 202410
  2. WEGOVY [Suspect]
     Active Substance: SEMAGLUTIDE
     Route: 058
  3. WEGOVY [Suspect]
     Active Substance: SEMAGLUTIDE
     Route: 058
     Dates: start: 20241130
  4. VYVANSE [Concomitant]
     Active Substance: LISDEXAMFETAMINE DIMESYLATE
     Indication: Product used for unknown indication
     Route: 048
     Dates: start: 202202
  5. ZOPICLONE [Concomitant]
     Active Substance: ZOPICLONE
     Indication: Insomnia
     Dates: start: 202406
  6. NUVARING [Concomitant]
     Active Substance: ETHINYL ESTRADIOL\ETONOGESTREL
     Indication: Product used for unknown indication
     Route: 067
     Dates: start: 201706

REACTIONS (8)
  - Pertussis [Unknown]
  - Loss of consciousness [Unknown]
  - Blood pressure decreased [Unknown]
  - Dizziness postural [Unknown]
  - Mycoplasma infection [Unknown]
  - Orthostatic hypotension [Unknown]
  - Sensitive skin [Unknown]
  - Allodynia [Unknown]

NARRATIVE: CASE EVENT DATE: 20241130
